FAERS Safety Report 8418548-1 (Version None)
Quarter: 2012Q2

REPORT INFORMATION
  Report Type: 
  Country: None (occurrence: None)
  Receive Date: 20120607
  Receipt Date: 20120525
  Transmission Date: 20120825
  Serious: Yes (Other)
  Sender: FDA-Public Use
  Company Number: US-CELGENEUS-163-20785-09081507

PATIENT
  Sex: Female

DRUGS (4)
  1. THALOMID [Suspect]
     Dosage: 100 MILLIGRAM
     Route: 048
     Dates: start: 20090501, end: 20090701
  2. PREDNISONE [Concomitant]
     Dosage: 2.5 MILLIGRAM
     Route: 065
  3. PREDNISONE [Concomitant]
     Dosage: 5 MILLIGRAM
     Route: 065
  4. THALOMID [Suspect]
     Dosage: 50 MILLIGRAM
     Route: 048
     Dates: start: 20090401, end: 20090501

REACTIONS (2)
  - PLATELET COUNT INCREASED [None]
  - WHITE BLOOD CELL COUNT INCREASED [None]
